FAERS Safety Report 10172053 (Version 2)
Quarter: 2014Q2

REPORT INFORMATION
  Report Type: Spontaneous
  Country: CA (occurrence: CA)
  Receive Date: 20140515
  Receipt Date: 20140515
  Transmission Date: 20141212
  Serious: Yes (Death)
  Sender: FDA-Public Use
  Company Number: CA-009507513-1112USA00951

PATIENT
  Age: 31 Year
  Sex: Female
  Weight: 54 kg

DRUGS (7)
  1. SINEMET CR [Suspect]
     Dosage: STRENGTH: 100-25
     Route: 048
  2. CITALOPRAM [Suspect]
     Dosage: 40 MG, UNK
     Route: 048
  3. DIAZEPAM [Suspect]
     Dosage: 10 MG, UNK
     Route: 065
  4. ENDOCET [Suspect]
     Route: 048
  5. GABAPENTIN [Suspect]
     Dosage: 300 MG, UNK
     Route: 065
  6. LORAZEPAM [Suspect]
     Route: 065
  7. WELLBUTRIN XL [Suspect]
     Dosage: 300 MG, UNK
     Route: 065

REACTIONS (1)
  - Toxicity to various agents [Fatal]
